FAERS Safety Report 21327050 (Version 2)
Quarter: 2022Q4

REPORT INFORMATION
  Report Type: Report from Study
  Country: US (occurrence: US)
  Receive Date: 20220913
  Receipt Date: 20221011
  Transmission Date: 20230112
  Serious: No
  Sender: FDA-Public Use
  Company Number: US-SA-SAC20220912001115

PATIENT
  Sex: Female

DRUGS (15)
  1. TERIFLUNOMIDE [Suspect]
     Active Substance: TERIFLUNOMIDE
     Dosage: UNK UNK, QD
     Route: 048
     Dates: start: 20130809
  2. BUMETANIDE [Concomitant]
     Active Substance: BUMETANIDE
  3. SPIRONOLACTONE [Concomitant]
     Active Substance: SPIRONOLACTONE
  4. METOPROLOL [Concomitant]
     Active Substance: METOPROLOL
  5. HERBALS\TURMERIC [Concomitant]
     Active Substance: HERBALS\TURMERIC
  6. NAPROXEN [Concomitant]
     Active Substance: NAPROXEN
  7. LEVOTHYROXINE [Concomitant]
     Active Substance: LEVOTHYROXINE
  8. BAYER ASPIRIN [Concomitant]
     Active Substance: ASPIRIN
  9. XANAX [Concomitant]
     Active Substance: ALPRAZOLAM
  10. MELOXICAM [Concomitant]
     Active Substance: MELOXICAM
  11. VITAMIN D NOS [Concomitant]
     Active Substance: VITAMIN D NOS
  12. ATENOLOL [Concomitant]
     Active Substance: ATENOLOL
  13. PRAVASTATIN [Concomitant]
     Active Substance: PRAVASTATIN
  14. CARBAMAZEPINE [Concomitant]
     Active Substance: CARBAMAZEPINE
  15. GABAPENTIN [Concomitant]
     Active Substance: GABAPENTIN

REACTIONS (2)
  - Rhinorrhoea [Not Recovered/Not Resolved]
  - Hypersensitivity [Not Recovered/Not Resolved]
